FAERS Safety Report 5387334-1 (Version None)
Quarter: 2007Q3

REPORT INFORMATION
  Report Type: 
  Country: None (occurrence: None)
  Receive Date: 20070716
  Receipt Date: 20070706
  Transmission Date: 20080115
  Serious: Yes (Other)
  Sender: FDA-Public Use
  Company Number: PHNU2007DE01764

PATIENT
  Age: 75 Year
  Sex: Female
  Weight: 62 kg

DRUGS (2)
  1. AREDIA [Suspect]
     Indication: OSTEONECROSIS
     Dosage: 90 MG, QMO
     Route: 042
     Dates: start: 20020901, end: 20050401
  2. AREDIA [Suspect]
     Dosage: 90 MG, TIW
     Route: 042
     Dates: start: 20070501, end: 20070101

REACTIONS (5)
  - ACTINOMYCOSIS [None]
  - BIOPSY GINGIVAL [None]
  - ORAL SURGERY [None]
  - OSTEONECROSIS [None]
  - PLASTIC SURGERY [None]
